FAERS Safety Report 5861802-8 (Version None)
Quarter: 2008Q3

REPORT INFORMATION
  Report Type: 
  Country: None (occurrence: None)
  Receive Date: 20080827
  Receipt Date: 20080702
  Transmission Date: 20090109
  Serious: No
  Sender: FDA-Public Use
  Company Number: US-ABBOTT-08P-163-0460587-00

PATIENT
  Sex: Male
  Weight: 65.83 kg

DRUGS (19)
  1. NIASPAN [Suspect]
     Indication: CORONARY ARTERY DISEASE
     Route: 058
  2. NIASPAN [Suspect]
     Indication: ILL-DEFINED DISORDER
  3. ACETYLSALICYLIC ACID SRT [Concomitant]
     Indication: FLUSHING
     Dosage: 325 MILLIGRAM 1/2 HOUR BEFORE NIASPAN
  4. ADOVART [Concomitant]
     Indication: PROSTATOMEGALY
  5. LANSOPRAZOLE [Concomitant]
     Indication: GASTROOESOPHAGEAL REFLUX DISEASE
  6. ALPRAZOLAM [Concomitant]
     Indication: NERVOUSNESS
     Dosage: PRN TAKES 1/2 PILL
  7. RANOLAZINE [Concomitant]
     Indication: DRUG USE FOR UNKNOWN INDICATION
  8. TOPAMAX [Concomitant]
     Indication: DRUG USE FOR UNKNOWN INDICATION
  9. TRAMADOL HCL [Concomitant]
     Indication: PAIN
  10. FISH OIL [Concomitant]
     Indication: DRUG USE FOR UNKNOWN INDICATION
  11. EZETIMIBE [Concomitant]
     Indication: DRUG USE FOR UNKNOWN INDICATION
  12. MONTELUKAST SODIUM [Concomitant]
     Indication: HYPERSENSITIVITY
  13. MULTI-VITAMINS [Concomitant]
     Indication: DRUG USE FOR UNKNOWN INDICATION
     Dosage: DAILY
  14. MORNIFLUMATE [Concomitant]
     Indication: PROSTATIC DISORDER
  15. ROSUVASTATIN [Concomitant]
     Indication: DRUG USE FOR UNKNOWN INDICATION
  16. DIOVAN HCT [Concomitant]
     Indication: HYPERTENSION
  17. METHANAX [Concomitant]
     Indication: DRUG USE FOR UNKNOWN INDICATION
  18. TORSEMIDE [Concomitant]
     Indication: JOINT SWELLING
  19. QUESTOR [Concomitant]
     Indication: DRUG USE FOR UNKNOWN INDICATION

REACTIONS (1)
  - PARAESTHESIA [None]
